FAERS Safety Report 17706252 (Version 3)
Quarter: 2020Q2

REPORT INFORMATION
  Report Type: Spontaneous
  Country: US (occurrence: US)
  Receive Date: 20200424
  Receipt Date: 20200622
  Transmission Date: 20200714
  Serious: No
  Sender: FDA-Public Use
  Company Number: US-PFIZER INC-2020162762

PATIENT
  Age: 62 Year
  Sex: Male

DRUGS (1)
  1. XELJANZ [Suspect]
     Active Substance: TOFACITINIB CITRATE
     Indication: COLITIS ULCERATIVE
     Dosage: 5 MG, 2X/DAY
     Route: 048
     Dates: start: 201803

REACTIONS (7)
  - Arthralgia [Unknown]
  - Joint swelling [Unknown]
  - Product dose omission [Unknown]
  - Headache [Unknown]
  - Nerve compression [Unknown]
  - Memory impairment [Not Recovered/Not Resolved]
  - Nocturia [Unknown]
